FAERS Safety Report 4590954-5 (Version None)
Quarter: 2005Q1

REPORT INFORMATION
  Report Type: 
  Country: None (occurrence: None)
  Receive Date: 20050225
  Receipt Date: 20041018
  Transmission Date: 20050727
  Serious: Yes (Death, Other)
  Sender: FDA-Public Use
  Company Number: PHBS2004BR13887

PATIENT
  Age: 26 Year
  Sex: Female

DRUGS (12)
  1. ERGOTRATE [Concomitant]
  2. PROPOFOL [Concomitant]
  3. FENTANYL [Concomitant]
  4. MIDAZOLAM HCL [Concomitant]
  5. CEFAZOLIN [Concomitant]
  6. ADRENALINE [Concomitant]
  7. ATROPINE [Concomitant]
  8. LIDOCAINE [Concomitant]
  9. SYNTOCINON [Suspect]
     Indication: LABOUR INDUCTION
     Dosage: 11:10 AM: 5IU IN 500 ML SALINE (8DROPS/MIN)
     Route: 042
     Dates: start: 20020418, end: 20020418
  10. SYNTOCINON [Suspect]
     Dosage: 3:00 PM: 5IU IN 500 ML SALINE (8DROPS/MIN)
     Route: 042
     Dates: start: 20020418, end: 20020418
  11. SYNTOCINON [Suspect]
     Dosage: 4:45 PM: 5IU IN 500 ML SALINE (8DROPS/MIN)
     Route: 042
     Dates: start: 20020418, end: 20020418
  12. SYNTOCINON [Suspect]
     Dosage: UNK, UNK
     Route: 042
     Dates: start: 20020418, end: 20020418

REACTIONS (17)
  - BLOOD PRESSURE DECREASED [None]
  - CARDIOPULMONARY FAILURE [None]
  - CONDITION AGGRAVATED [None]
  - CONVULSION [None]
  - DISSEMINATED INTRAVASCULAR COAGULATION [None]
  - HAEMATOCRIT DECREASED [None]
  - HAEMOGLOBIN DECREASED [None]
  - HYPOVOLAEMIC SHOCK [None]
  - HYSTERECTOMY [None]
  - LOSS OF CONSCIOUSNESS [None]
  - MYDRIASIS [None]
  - OVERDOSE [None]
  - PETECHIAE [None]
  - POOR PERIPHERAL CIRCULATION [None]
  - PSYCHOMOTOR AGITATION [None]
  - PULSE ABSENT [None]
  - VAGINAL HAEMORRHAGE [None]
